FAERS Safety Report 18474245 (Version 7)
Quarter: 2021Q2

REPORT INFORMATION
  Report Type: Spontaneous
  Country: US (occurrence: US)
  Receive Date: 20201106
  Receipt Date: 20210604
  Transmission Date: 20210717
  Serious: Yes (Other)
  Sender: FDA-Public Use
  Company Number: US-PFIZER INC-2020428810

PATIENT
  Age: 81 Year
  Sex: Female
  Weight: 38.55 kg

DRUGS (4)
  1. BRAFTOVI [Suspect]
     Active Substance: ENCORAFENIB
     Dosage: 3 DF, DAILY
  2. BRAFTOVI [Suspect]
     Active Substance: ENCORAFENIB
     Dosage: UNK, 2X/DAY
  3. BENADRYL [Concomitant]
     Active Substance: DIPHENHYDRAMINE HYDROCHLORIDE
     Dosage: UNK, WEEKLY (EVERY MONDAY)
  4. BRAFTOVI [Suspect]
     Active Substance: ENCORAFENIB
     Dosage: 300 MG, DAILY (2 DF DAILY)

REACTIONS (15)
  - Rash macular [Unknown]
  - Scratch [Unknown]
  - Dry mouth [Unknown]
  - Cerebrovascular accident [Unknown]
  - Asthenia [Not Recovered/Not Resolved]
  - Depressed mood [Unknown]
  - Pain [Not Recovered/Not Resolved]
  - Insomnia [Unknown]
  - Weight decreased [Not Recovered/Not Resolved]
  - Neoplasm progression [Unknown]
  - Paraesthesia [Not Recovered/Not Resolved]
  - Taste disorder [Not Recovered/Not Resolved]
  - Ear pruritus [Not Recovered/Not Resolved]
  - Eating disorder [Unknown]
  - Pruritus [Not Recovered/Not Resolved]
